FAERS Safety Report 5091134-X (Version None)
Quarter: 2006Q3

REPORT INFORMATION
  Report Type: 
  Country: None (occurrence: None)
  Receive Date: 20060727
  Receipt Date: 20060410
  Transmission Date: 20061208
  Serious: Yes (Other)
  Sender: FDA-Public Use
  Company Number: 2006047393

PATIENT
  Age: 43 Year
  Sex: Male
  Weight: 117.9352 kg

DRUGS (8)
  1. LYRICA [Suspect]
     Indication: NERVE INJURY
     Dosage: 75 MG (75 MG,1 IN 1 D),ORAL
     Route: 048
     Dates: start: 20060301
  2. CELEXA [Suspect]
     Indication: ASTHENIA
     Dosage: 20 MG (20 MG,1 IN 1 D),ORAL
     Route: 048
     Dates: start: 20060301
  3. PROPECIA [Concomitant]
  4. NAPROSYN [Concomitant]
  5. ZYRTEC [Concomitant]
  6. HYDROCODONE (HYDROCODONE) [Concomitant]
  7. CEPHALEXIN [Concomitant]
  8. ZOCOR [Concomitant]

REACTIONS (1)
  - SEXUAL DYSFUNCTION [None]
